FAERS Safety Report 4763237-8 (Version None)
Quarter: 2005Q3

REPORT INFORMATION
  Report Type: 
  Country: None (occurrence: None)
  Receive Date: 20050902
  Receipt Date: 20050829
  Transmission Date: 20060218
  Serious: Yes (Other)
  Sender: FDA-Public Use
  Company Number: 2005-06-1880

PATIENT
  Age: 41 Year
  Sex: Female
  Weight: 61 kg

DRUGS (6)
  1. INTRON A [Suspect]
     Indication: HEPATITIS C
     Dosage: SEE IMAGE
     Route: 030
     Dates: start: 20050118, end: 20050124
  2. INTRON A [Suspect]
     Indication: HEPATITIS C
     Dosage: SEE IMAGE
     Route: 030
     Dates: start: 20050125, end: 20050130
  3. INTRON A [Suspect]
     Indication: HEPATITIS C
     Dosage: SEE IMAGE
     Route: 030
     Dates: start: 20050118, end: 20050620
  4. INTRON A [Suspect]
     Indication: HEPATITIS C
     Dosage: SEE IMAGE
     Route: 030
     Dates: start: 20050131, end: 20050620
  5. REBETOL (RIBAVERIN ) CAPSULES [Suspect]
     Indication: HEPATITIS C
     Dosage: 800-400MG ORAL
     Route: 048
     Dates: start: 20050118, end: 20050620
  6. GASTER [Concomitant]

REACTIONS (8)
  - AGGRESSION [None]
  - ANXIETY [None]
  - CHILD ABUSE [None]
  - DEPRESSIVE SYMPTOM [None]
  - HAEMOGLOBIN DECREASED [None]
  - INSOMNIA [None]
  - IRRITABILITY [None]
  - MORBID THOUGHTS [None]
